FAERS Safety Report 14446236 (Version 4)
Quarter: 2018Q2

REPORT INFORMATION
  Report Type: Spontaneous
  Country: JP (occurrence: JP)
  Receive Date: 20180126
  Receipt Date: 20180516
  Transmission Date: 20180711
  Serious: Yes (Hospitalization, Disabling, Other)
  Sender: FDA-Public Use
  Company Number: JP-BRISTOL-MYERS SQUIBB COMPANY-BMS-2018-006537

PATIENT
  Age: 69 Year
  Sex: Male

DRUGS (1)
  1. OPDIVO [Suspect]
     Active Substance: NIVOLUMAB
     Indication: NON-SMALL CELL LUNG CANCER
     Dosage: 3 MG/KG, Q2WK
     Route: 041

REACTIONS (5)
  - Pyrexia [Recovered/Resolved]
  - Cortisol decreased [Recovering/Resolving]
  - Blood corticotrophin decreased [Recovering/Resolving]
  - Dysgeusia [Unknown]
  - Hypopituitarism [Recovering/Resolving]

NARRATIVE: CASE EVENT DATE: 20170913
